FAERS Safety Report 8785119 (Version 1)
Quarter: 2012Q4

REPORT INFORMATION
  Report Type: Spontaneous
  Country: US (occurrence: None)
  Receive Date: 20120907
  Receipt Date: 20120907
  Transmission Date: 20130627
  Serious: No
  Sender: FDA-Public Use
  Company Number: None

PATIENT
  Age: 47 Year
  Sex: Female
  Weight: 63.6 kg

DRUGS (1)
  1. SCOPOLAMINE [Suspect]
     Indication: PREOPERATIVE CARE
     Route: 062
     Dates: start: 20120823

REACTIONS (7)
  - Vomiting [None]
  - Headache [None]
  - Rash erythematous [None]
  - Eye swelling [None]
  - Blindness unilateral [None]
  - Hypersensitivity [None]
  - Angle closure glaucoma [None]
